FAERS Safety Report 7640851-3 (Version None)
Quarter: 2011Q3

REPORT INFORMATION
  Report Type: 
  Country: None (occurrence: None)
  Receive Date: 20110728
  Receipt Date: 20110727
  Transmission Date: 20111222
  Serious: Yes (Death)
  Sender: FDA-Public Use
  Company Number: MA-SANOFI-AVENTIS-2011SA026691

PATIENT
  Age: 24 Hour
  Sex: Male
  Weight: 5 kg

DRUGS (1)
  1. LOVENOX [Suspect]
     Indication: THROMBOPHLEBITIS
     Dosage: DOSE: 0.6X2
     Route: 064

REACTIONS (2)
  - DEATH NEONATAL [None]
  - MATERNAL EXPOSURE DURING PREGNANCY [None]
